FAERS Safety Report 17692667 (Version 1)
Quarter: 2020Q2

REPORT INFORMATION
  Report Type: Spontaneous
  Country: US (occurrence: US)
  Receive Date: 20200420
  Receipt Date: 20200420
  Transmission Date: 20200714
  Serious: No
  Sender: FDA-Public Use
  Company Number: None

PATIENT
  Age: 67 Year
  Sex: Male

DRUGS (3)
  1. PACLITAXEL INJ 100MG/16.7 [Suspect]
     Active Substance: PACLITAXEL
     Route: 042
  2. DEXAMETH PHO PF SDV [Concomitant]
  3. CARBOPLATIN MDV [Concomitant]
     Dates: start: 20191209

REACTIONS (2)
  - Coronavirus infection [None]
  - Phlebitis [None]

NARRATIVE: CASE EVENT DATE: 20200420
